FAERS Safety Report 18890701 (Version 1)
Quarter: 2021Q1

REPORT INFORMATION
  Report Type: Spontaneous
  Country: IN (occurrence: IN)
  Receive Date: 20210215
  Receipt Date: 20210215
  Transmission Date: 20210420
  Serious: Yes (Death, Life-Threatening, Hospitalization, Other)
  Sender: FDA-Public Use
  Company Number: IN-GLENMARK PHARMACEUTICALS-2021GMK051639

PATIENT
  Age: 12 Year
  Sex: Female
  Weight: 19.7 kg

DRUGS (6)
  1. GRANULOCYTE COLONY STIMULATING FACTOR [Concomitant]
     Active Substance: GRANULOCYTE COLONY-STIMULATING FACTOR NOS
     Indication: IMMUNE-MEDIATED CYTOPENIA
     Dosage: UNK
     Route: 065
  2. RITUXIMAB. [Concomitant]
     Active Substance: RITUXIMAB
     Indication: IMMUNE-MEDIATED CYTOPENIA
     Dosage: UNK
     Route: 065
  3. ELTROMBOPAG [Concomitant]
     Active Substance: ELTROMBOPAG
     Indication: IMMUNE-MEDIATED CYTOPENIA
     Dosage: UNK
     Route: 065
  4. MYCOPHENOLATE MOFETIL. [Concomitant]
     Active Substance: MYCOPHENOLATE MOFETIL
     Indication: IMMUNE-MEDIATED CYTOPENIA
     Dosage: UNK
     Route: 065
  5. CYCLOSPORINE. [Suspect]
     Active Substance: CYCLOSPORINE
     Indication: IMMUNE-MEDIATED CYTOPENIA
     Dosage: UNK
     Route: 065
  6. TACROLIMUS. [Suspect]
     Active Substance: TACROLIMUS
     Indication: IMMUNE-MEDIATED CYTOPENIA
     Dosage: UNK
     Route: 065

REACTIONS (11)
  - Gingival bleeding [Fatal]
  - Metapneumovirus infection [Fatal]
  - Post transplant distal limb syndrome [Unknown]
  - Pneumonia [Fatal]
  - Hypovolaemic shock [Fatal]
  - Cardiac arrest [Fatal]
  - Circulatory collapse [Fatal]
  - Gingival hypertrophy [Fatal]
  - Toxicity to various agents [Unknown]
  - Haemodynamic instability [Fatal]
  - Hypertension [Unknown]
